FAERS Safety Report 8128130-1 (Version None)
Quarter: 2012Q1

REPORT INFORMATION
  Report Type: 
  Country: None (occurrence: None)
  Receive Date: 20120210
  Receipt Date: 20120203
  Transmission Date: 20120608
  Serious: Yes (Other)
  Sender: FDA-Public Use
  Company Number: ES-PERRIGO-12ES000931

PATIENT

DRUGS (1)
  1. IMIQUIMOD [Suspect]
     Indication: LENTIGO MALIGNA STAGE UNSPECIFIED
     Dosage: UNK
     Route: 061

REACTIONS (2)
  - OFF LABEL USE [None]
  - DISEASE PROGRESSION [None]
